FAERS Safety Report 14355576 (Version 1)
Quarter: 2018Q1

REPORT INFORMATION
  Report Type: Spontaneous
  Country: FR (occurrence: FR)
  Receive Date: 20180105
  Receipt Date: 20180105
  Transmission Date: 20180509
  Serious: Yes (Hospitalization)
  Sender: FDA-Public Use
  Company Number: FR-PFIZER INC-2017555780

PATIENT
  Age: 20 Year
  Sex: Male
  Weight: 79 kg

DRUGS (4)
  1. TEICOPLANINE [Suspect]
     Active Substance: TEICOPLANIN
     Indication: INFECTION
     Dosage: 1500 MG, 1X/DAY
     Route: 058
     Dates: start: 20171108, end: 20171120
  2. LAMALINE [Suspect]
     Active Substance: ACETAMINOPHEN\CAFFEINE\OPIUM
     Indication: PAIN
     Dosage: 2 DF, EVERY 6 HOURS
     Route: 048
     Dates: start: 20171110, end: 20171120
  3. DEPAKINE [Concomitant]
     Active Substance: VALPROATE SODIUM
     Indication: EPILEPSY
     Dosage: 2 G, 1X/DAY
     Route: 048
  4. DALACINE [Suspect]
     Active Substance: CLINDAMYCIN HYDROCHLORIDE
     Indication: INFECTION
     Dosage: 2700 MG, 1X/DAY
     Route: 048
     Dates: start: 20171108, end: 20171120

REACTIONS (3)
  - Rash maculo-papular [Recovering/Resolving]
  - Pruritus [Recovering/Resolving]
  - Administration site induration [Recovering/Resolving]

NARRATIVE: CASE EVENT DATE: 20171119
